FAERS Safety Report 5029216-0 (Version None)
Quarter: 2006Q2

REPORT INFORMATION
  Report Type: 
  Country: None (occurrence: None)
  Receive Date: 20060613
  Receipt Date: 20060601
  Transmission Date: 20061013
  Serious: Yes (Death, Other)
  Sender: FDA-Public Use
  Company Number: 2006071134

PATIENT
  Age: 62 Year
  Sex: Male

DRUGS (4)
  1. PREGABALIN            (PREGABALIN) [Suspect]
     Indication: SCIATICA
     Dosage: 150 MG (75 MG, 2 IN 1 D), ORAL
     Route: 048
     Dates: start: 20060517, end: 20060518
  2. NITROGLYCERIN [Concomitant]
  3. GLUCOVANCE [Concomitant]
  4. ATORVASTATIN CALCIUM [Concomitant]

REACTIONS (5)
  - ANURIA [None]
  - CARDIAC ARREST [None]
  - CYANOSIS [None]
  - OEDEMA [None]
  - SOMNOLENCE [None]
